FAERS Safety Report 17926789 (Version 1)
Quarter: 2020Q2

REPORT INFORMATION
  Report Type: Other
  Country: US (occurrence: US)
  Receive Date: 20200623
  Receipt Date: 20200623
  Transmission Date: 20200714
  Serious: No
  Sender: FDA-Public Use
  Company Number: US-BIOVITRUM-2019US1132

PATIENT
  Age: 18 Year
  Sex: Female

DRUGS (8)
  1. KINERET [Suspect]
     Active Substance: ANAKINRA
     Route: 058
     Dates: start: 20190429
  2. KINERET [Suspect]
     Active Substance: ANAKINRA
  3. VITAMIN D [Concomitant]
     Active Substance: VITAMIN D NOS
  4. FAMOTIDINE. [Concomitant]
     Active Substance: FAMOTIDINE
  5. VITAMIN C [Concomitant]
     Active Substance: ASCORBIC ACID
  6. SINGULAIR [Concomitant]
     Active Substance: MONTELUKAST SODIUM
  7. HYDROXYZINE [Concomitant]
     Active Substance: HYDROXYZINE HYDROCHLORIDE
  8. IRON SUPPLEMENTS [Concomitant]
     Active Substance: IRON

REACTIONS (4)
  - Injection site bruising [Unknown]
  - Haemoglobin decreased [Not Recovered/Not Resolved]
  - Injection site swelling [Unknown]
  - Platelet count decreased [Not Recovered/Not Resolved]

NARRATIVE: CASE EVENT DATE: 20190405
